FAERS Safety Report 9300203 (Version 2)
Quarter: 2013Q3

REPORT INFORMATION
  Report Type: Report from Study
  Country: US (occurrence: US)
  Receive Date: 20130521
  Receipt Date: 20130814
  Transmission Date: 20140515
  Serious: Yes (Hospitalization)
  Sender: FDA-Public Use
  Company Number: PHEH2013US009054

PATIENT
  Age: 50 Year
  Sex: Female
  Weight: 67.85 kg

DRUGS (1)
  1. GILENYA [Suspect]
     Indication: MULTIPLE SCLEROSIS
     Dosage: 0.5 MG, QD
     Route: 048
     Dates: start: 20130417

REACTIONS (4)
  - Chest pain [Unknown]
  - Headache [Unknown]
  - Eye pain [Unknown]
  - Dizziness [Recovered/Resolved]
